FAERS Safety Report 12911261 (Version 1)
Quarter: 2016Q4

REPORT INFORMATION
  Report Type: Spontaneous
  Country: DE (occurrence: DE)
  Receive Date: 20161104
  Receipt Date: 20161104
  Transmission Date: 20170207
  Serious: Yes (Other)
  Sender: FDA-Public Use
  Company Number: DE-SA-2016SA163321

PATIENT
  Age: 69 Year
  Sex: Female
  Weight: 80 kg

DRUGS (13)
  1. TOLTERODIN [Concomitant]
  2. DEKRISTOL [Concomitant]
     Active Substance: CHOLECALCIFEROL
     Dosage: DOSE:20000 UNIT(S)
  3. METFORMIN [Concomitant]
     Active Substance: METFORMIN HYDROCHLORIDE
  4. AUBAGIO [Suspect]
     Active Substance: TERIFLUNOMIDE
     Indication: MULTIPLE SCLEROSIS
     Route: 048
  5. FENOFIBRATE. [Concomitant]
     Active Substance: FENOFIBRATE
     Dosage: 200 MG 3 X WEEK
  6. AUBAGIO [Suspect]
     Active Substance: TERIFLUNOMIDE
     Indication: MULTIPLE SCLEROSIS
     Route: 048
     Dates: start: 201503, end: 201609
  7. LEVODOPA [Concomitant]
     Active Substance: LEVODOPA
     Dosage: 100/25 MG; DEPOT
  8. AMITRIPTYLIN [Concomitant]
     Active Substance: AMITRIPTYLINE
  9. PANTOPRAZOL [Concomitant]
     Active Substance: PANTOPRAZOLE SODIUM
  10. TAMSULOSIN [Concomitant]
     Active Substance: TAMSULOSIN
  11. FOLSAN [Concomitant]
     Active Substance: FOLIC ACID
  12. PREGABALIN. [Concomitant]
     Active Substance: PREGABALIN
  13. L-THYROX [Concomitant]
     Active Substance: LEVOTHYROXINE SODIUM

REACTIONS (3)
  - Pharyngitis streptococcal [Unknown]
  - Tonsillitis streptococcal [Recovered/Resolved]
  - Oropharyngeal pain [Recovered/Resolved]

NARRATIVE: CASE EVENT DATE: 20160826
